FAERS Safety Report 16299444 (Version 1)
Quarter: 2019Q2

REPORT INFORMATION
  Report Type: Spontaneous
  Country: SE (occurrence: SE)
  Receive Date: 20190510
  Receipt Date: 20190510
  Transmission Date: 20190711
  Serious: Yes (Other)
  Sender: FDA-Public Use
  Company Number: SE-009507513-1905SWE001968

PATIENT
  Age: 38 Year
  Sex: Female

DRUGS (4)
  1. ERGENYL [Concomitant]
     Active Substance: VALPROIC ACID
  2. DESLORATADINE. [Suspect]
     Active Substance: DESLORATADINE
     Indication: ALLERGY PROPHYLAXIS
     Dates: start: 20190319, end: 20190320
  3. PENICILLIN V [Concomitant]
     Active Substance: PENICILLIN V
  4. COLCHICINE. [Concomitant]
     Active Substance: COLCHICINE

REACTIONS (2)
  - Vomiting [Recovered/Resolved]
  - Hallucination [Recovered/Resolved]

NARRATIVE: CASE EVENT DATE: 20190320
